FAERS Safety Report 14081911 (Version 2)
Quarter: 2017Q4

REPORT INFORMATION
  Report Type: Spontaneous
  Country: US (occurrence: US)
  Receive Date: 20171012
  Receipt Date: 20171113
  Transmission Date: 20180321
  Serious: No
  Sender: FDA-Public Use
  Company Number: US-MYLANLABS-2017M1042191

PATIENT
  Sex: Female

DRUGS (1)
  1. FENTANYL TRANSDERMAL SYSTEM [Suspect]
     Active Substance: FENTANYL
     Indication: PAIN
     Dosage: 12 ?G, QH, CHANGED EVERY 72 HOURS
     Route: 062
     Dates: start: 2011, end: 2017

REACTIONS (4)
  - Intentional product misuse [Unknown]
  - Product adhesion issue [Unknown]
  - Drug dose omission [Unknown]
  - No adverse event [Unknown]
